FAERS Safety Report 5263641-8 (Version None)
Quarter: 2007Q1

REPORT INFORMATION
  Report Type: 
  Country: None (occurrence: None)
  Receive Date: 20070313
  Receipt Date: 20070307
  Transmission Date: 20070707
  Serious: No
  Sender: FDA-Public Use
  Company Number: GB-BAXTER-2006BH014627

PATIENT

DRUGS (7)
  1. TISSUCOL/TISSEEL KIT STIM4 [Suspect]
     Indication: NERVOUS SYSTEM SURGERY
     Route: 065
  2. TISSUCOL/TISSEEL KIT STIM4 [Suspect]
     Route: 065
  3. TISSUCOL/TISSEEL KIT STIM4 [Suspect]
     Route: 065
  4. TISSUCOL/TISSEEL KIT STIM4 [Suspect]
     Route: 065
  5. TISSUCOL/TISSEEL KIT STIM4 [Suspect]
     Route: 065
  6. TISSUCOL/TISSEEL KIT STIM4 [Suspect]
     Route: 065
  7. TISSUCOL/TISSEEL KIT STIM4 [Suspect]
     Route: 065

REACTIONS (2)
  - ANAPHYLACTIC REACTION [None]
  - LIVER FUNCTION TEST ABNORMAL [None]
